FAERS Safety Report 20387401 (Version 3)
Quarter: 2022Q1

REPORT INFORMATION
  Report Type: Spontaneous
  Country: JP (occurrence: JP)
  Receive Date: 20220127
  Receipt Date: 20220207
  Transmission Date: 20220423
  Serious: Yes (Other)
  Sender: FDA-Public Use
  Company Number: JP-MSD-2201JPN002456J

PATIENT
  Age: 54 Year
  Sex: Male

DRUGS (1)
  1. KEYTRUDA [Suspect]
     Active Substance: PEMBROLIZUMAB
     Indication: Lung adenocarcinoma stage IV
     Dosage: 200 MILLIGRAM
     Route: 041

REACTIONS (4)
  - Systemic scleroderma [Recovering/Resolving]
  - Tumour pseudoprogression [Unknown]
  - Tumour hyperprogression [Unknown]
  - Diarrhoea [Recovering/Resolving]
